FAERS Safety Report 19942968 (Version 1)
Quarter: 2021Q4

REPORT INFORMATION
  Report Type: Spontaneous
  Country: CN (occurrence: CN)
  Receive Date: 20211012
  Receipt Date: 20211012
  Transmission Date: 20220304
  Serious: Yes (Other)
  Sender: FDA-Public Use
  Company Number: CN-SUN PHARMACEUTICAL INDUSTRIES LTD-2021R1-313673

PATIENT
  Age: 54 Year
  Sex: Female

DRUGS (1)
  1. GEMCITABINE [Suspect]
     Active Substance: GEMCITABINE
     Indication: Chemotherapy
     Dosage: 1000 MILLIGRAM/SQ. METER, ON DAYS 1 AND 8 EVERY 3 WEEKS, 2 CYCLES
     Route: 065

REACTIONS (1)
  - Disease progression [Unknown]
